FAERS Safety Report 21552365 (Version 1)
Quarter: 2022Q4

REPORT INFORMATION
  Report Type: Spontaneous
  Country: US (occurrence: US)
  Receive Date: 20221104
  Receipt Date: 20221104
  Transmission Date: 20230113
  Serious: No
  Sender: FDA-Public Use
  Company Number: US-ViiV Healthcare Limited-87166

PATIENT

DRUGS (4)
  1. RILPIVIRINE [Suspect]
     Active Substance: RILPIVIRINE
     Indication: Product used for unknown indication
     Dosage: UNK UNK, Z (EVERY MONTH)
     Route: 065
  2. RILPIVIRINE [Suspect]
     Active Substance: RILPIVIRINE
     Dosage: UNK UNK, Z (EVERY MONTH)
     Route: 065
     Dates: start: 202207
  3. CABOTEGRAVIR [Suspect]
     Active Substance: CABOTEGRAVIR
     Indication: Product used for unknown indication
     Dosage: UNK UNK, Z (EVERY MONTH)
     Route: 065
  4. CABOTEGRAVIR [Suspect]
     Active Substance: CABOTEGRAVIR
     Dosage: UNK UNK, Z (EVERY 2 MONTH)
     Route: 065
     Dates: start: 202207

REACTIONS (2)
  - Viraemia [Unknown]
  - Viral load increased [Unknown]

NARRATIVE: CASE EVENT DATE: 20220101
